FAERS Safety Report 4800232-4 (Version None)
Quarter: 2005Q4

REPORT INFORMATION
  Report Type: 
  Country: None (occurrence: None)
  Receive Date: 20051017
  Receipt Date: 20050401
  Transmission Date: 20060501
  Serious: No
  Sender: FDA-Public Use
  Company Number: US-GLAXOSMITHKLINE-A0552330A

PATIENT
  Sex: Female

DRUGS (2)
  1. CEFTIN [Suspect]
     Route: 048
  2. NO CONCURRENT MEDICATION [Concomitant]

REACTIONS (7)
  - BACK PAIN [None]
  - DIZZINESS [None]
  - GLOSSODYNIA [None]
  - HEADACHE [None]
  - NAUSEA [None]
  - RASH [None]
  - TONGUE DISORDER [None]
